FAERS Safety Report 6930409-3 (Version None)
Quarter: 2010Q3

REPORT INFORMATION
  Report Type: 
  Country: None (occurrence: None)
  Receive Date: 20100818
  Receipt Date: 20100811
  Transmission Date: 20110219
  Serious: Yes (Disabling)
  Sender: FDA-Public Use
  Company Number: BR-ASTRAZENECA-2010SE37860

PATIENT
  Age: 63 Year
  Sex: Male
  Weight: 54 kg

DRUGS (2)
  1. SELOZOK [Suspect]
     Indication: HYPERTENSION
     Route: 048
     Dates: start: 20030101
  2. ADALAT [Concomitant]
     Indication: HYPERTENSION
     Route: 048
     Dates: start: 20030101

REACTIONS (1)
  - BONE FISSURE [None]
